FAERS Safety Report 6723919-5 (Version None)
Quarter: 2010Q2

REPORT INFORMATION
  Report Type: 
  Country: None (occurrence: None)
  Receive Date: 20100513
  Receipt Date: 20100429
  Transmission Date: 20101027
  Serious: Yes (Hospitalization)
  Sender: FDA-Public Use
  Company Number: IT-ROCHE-424959

PATIENT
  Sex: Female
  Weight: 73 kg

DRUGS (10)
  1. TRASTUZUMAB [Suspect]
     Indication: BREAST CANCER
     Dosage: LOADING DOSE.
     Route: 042
     Dates: start: 20050421
  2. TRASTUZUMAB [Suspect]
     Dosage: MAINTENANCE DOSE, DOSE 438MG/
     Route: 042
     Dates: start: 20050513
  3. CYCLOPHOSPHAMIDE [Suspect]
     Indication: BREAST CANCER
     Dosage: DAY 1 AND 8 EVERY 4 WEEKS FOR 3 CYCLES, DOSAGE FORM: 16 SEPTEMBER 2005
     Route: 042
     Dates: start: 20050916
  4. CYCLOPHOSPHAMIDE [Suspect]
     Dosage: 1 AND 8 EVERY 4 WEEKS FOR 3 CYCLES.
     Route: 042
     Dates: start: 20051014
  5. METHOTREXATE [Suspect]
     Indication: BREAST CANCER
     Dosage: DAY 1 AND 8 EVERY 4 WEEKS FOR 3 CYCLES, DOSAGE FORM: 16 SEPTEMBER 2005
     Route: 042
     Dates: start: 20050916
  6. METHOTREXATE [Suspect]
     Dosage: 1 AND 8 EVERY 4 WEEKS FOR 3 CYCLES
     Route: 042
     Dates: start: 20051014
  7. FLUOROURACIL [Suspect]
     Indication: BREAST CANCER
     Dosage: DAY 1 AND 8 EVERY 4 WEEKS FOR 3 CYCLES, DOSAGE FORM: 16 SEPTEMBER 2005
     Route: 042
     Dates: start: 20050916
  8. FLUOROURACIL [Suspect]
     Dosage: 1 AND 8 EVERY 4 WEEKS FOR 3 CYCLES
     Route: 042
     Dates: start: 20051014
  9. PACLITAXEL [Suspect]
     Indication: BREAST CANCER
     Route: 048
  10. DOXORUBICIN HCL [Suspect]
     Indication: BREAST CANCER
     Route: 042

REACTIONS (2)
  - FEBRILE NEUTROPENIA [None]
  - PANCYTOPENIA [None]
